FAERS Safety Report 15414815 (Version 1)
Quarter: 2018Q3

REPORT INFORMATION
  Report Type: Spontaneous
  Country: US (occurrence: US)
  Receive Date: 20180921
  Receipt Date: 20180921
  Transmission Date: 20181010
  Serious: Yes (Hospitalization, Other)
  Sender: FDA-Public Use
  Company Number: US-BAYER-2018-173238

PATIENT
  Age: 66 Year
  Sex: Male

DRUGS (9)
  1. DASATINIB. [Suspect]
     Active Substance: DASATINIB
     Indication: CHRONIC MYELOID LEUKAEMIA
     Dosage: 100 MG, QD
  2. METFORMIN [Concomitant]
     Active Substance: METFORMIN HYDROCHLORIDE
  3. NIFEDIPINE. [Concomitant]
     Active Substance: NIFEDIPINE
  4. ACETYLSALICYLIC ACID({=100 MG) [Suspect]
     Active Substance: ASPIRIN
     Indication: ANTIPLATELET THERAPY
     Dosage: 81 MG, UNK
     Route: 048
  5. SIMVASTATIN. [Concomitant]
     Active Substance: SIMVASTATIN
  6. CLOPIDOGREL [Suspect]
     Active Substance: CLOPIDOGREL BISULFATE
     Indication: ANTIPLATELET THERAPY
  7. GLIPIZIDE. [Concomitant]
     Active Substance: GLIPIZIDE
  8. IMATINIB [Concomitant]
     Active Substance: IMATINIB
     Indication: CHRONIC MYELOID LEUKAEMIA
  9. LOSARTAN. [Concomitant]
     Active Substance: LOSARTAN

REACTIONS (5)
  - Retinal haemorrhage [None]
  - Labelled drug-drug interaction medication error [None]
  - Blindness unilateral [Not Recovered/Not Resolved]
  - Hyphaema [Recovered/Resolved]
  - Drug interaction [None]
